FAERS Safety Report 8264649-0 (Version None)
Quarter: 2012Q2

REPORT INFORMATION
  Report Type: 
  Country: None (occurrence: None)
  Receive Date: 20120406
  Receipt Date: 20120330
  Transmission Date: 20120825
  Serious: Yes (Other)
  Sender: FDA-Public Use
  Company Number: JP-SANOFI-AVENTIS-2012SA023183

PATIENT
  Sex: Male

DRUGS (2)
  1. AMARYL [Suspect]
     Route: 065
  2. MIGLITOL [Concomitant]

REACTIONS (1)
  - ALOPECIA [None]
